FAERS Safety Report 11528546 (Version 1)
Quarter: 2015Q3

REPORT INFORMATION
  Report Type: Spontaneous
  Country: FI (occurrence: FI)
  Receive Date: 20150921
  Receipt Date: 20150921
  Transmission Date: 20151125
  Serious: Yes (Hospitalization)
  Sender: FDA-Public Use
  Company Number: FI-PFIZER INC-2015242345

PATIENT
  Age: 88 Year
  Sex: Female

DRUGS (3)
  1. LYRICA [Suspect]
     Active Substance: PREGABALIN
     Indication: NEURALGIA
     Dosage: 25 MG, 1X/DAY
     Dates: start: 201504, end: 20150716
  2. EXELON [Concomitant]
     Active Substance: RIVASTIGMINE TARTRATE
     Dosage: 9.5 MG, 1X/DAY
     Dates: start: 2010
  3. MEMANTIN [Concomitant]
     Active Substance: MEMANTINE
     Dosage: 20 MG, 1X/DAY
     Dates: start: 2012

REACTIONS (6)
  - Decreased appetite [Recovered/Resolved]
  - Confusional state [Unknown]
  - Hot flush [Recovered/Resolved]
  - Erythema [Recovered/Resolved]
  - Pyrexia [Recovered/Resolved]
  - Hyperhidrosis [Recovered/Resolved]

NARRATIVE: CASE EVENT DATE: 201505
